FAERS Safety Report 6919701-6 (Version None)
Quarter: 2010Q3

REPORT INFORMATION
  Report Type: 
  Country: None (occurrence: None)
  Receive Date: 20100811
  Receipt Date: 20100510
  Transmission Date: 20110219
  Serious: No
  Sender: FDA-Public Use
  Company Number: US-BRISTOL-MYERS SQUIBB COMPANY-15089642

PATIENT
  Age: 81 Year
  Sex: Male

DRUGS (1)
  1. IXEMPRA KIT [Suspect]
     Indication: PROSTATE CANCER METASTATIC
     Dosage: 35MG/M2, INF 10 .
     Route: 042
     Dates: start: 20091023

REACTIONS (3)
  - EXTRAVASATION [None]
  - OEDEMA PERIPHERAL [None]
  - PAIN IN EXTREMITY [None]
